FAERS Safety Report 11233045 (Version 1)
Quarter: 2015Q3

REPORT INFORMATION
  Report Type: Spontaneous
  Country: US (occurrence: US)
  Receive Date: 20150701
  Receipt Date: 20150701
  Transmission Date: 20151125
  Serious: No
  Sender: FDA-Public Use
  Company Number: ALCN2015US004186

PATIENT
  Sex: Female

DRUGS (2)
  1. TETRACAINE STERI-UNITS [Suspect]
     Active Substance: TETRACAINE\TETRACAINE HYDROCHLORIDE
     Indication: MYDRIASIS
     Dosage: 1-2 GTT, UNK
     Route: 047
     Dates: start: 20150603, end: 20150603
  2. MYDRIACYL [Suspect]
     Active Substance: TROPICAMIDE
     Indication: MYDRIASIS
     Dosage: 1-2 GTT, UNK
     Route: 047
     Dates: start: 20150603, end: 20150603

REACTIONS (1)
  - Heart rate increased [Recovered/Resolved]

NARRATIVE: CASE EVENT DATE: 20150603
